FAERS Safety Report 7762148-3 (Version None)
Quarter: 2011Q3

REPORT INFORMATION
  Report Type: 
  Country: None (occurrence: None)
  Receive Date: 20110920
  Receipt Date: 20110912
  Transmission Date: 20111222
  Serious: Yes (Hospitalization, Other)
  Sender: FDA-Public Use
  Company Number: CA-JNJFOC-20110905221

PATIENT
  Age: 67 Year
  Sex: Male
  Weight: 118 kg

DRUGS (4)
  1. ZOPICLON [Concomitant]
  2. FLUOXETINE HCL [Concomitant]
  3. PANTOPRAZOLE [Concomitant]
  4. XARELTO [Suspect]
     Indication: THROMBOSIS PROPHYLAXIS
     Route: 048
     Dates: start: 20110804, end: 20110816

REACTIONS (3)
  - SYNCOPE [None]
  - PRESYNCOPE [None]
  - PULMONARY EMBOLISM [None]
